FAERS Safety Report 8291413-9 (Version None)
Quarter: 2012Q2

REPORT INFORMATION
  Report Type: 
  Country: None (occurrence: None)
  Receive Date: 20120417
  Receipt Date: 20120410
  Transmission Date: 20120825
  Serious: Yes (Hospitalization)
  Sender: FDA-Public Use
  Company Number: JP-GLAXOSMITHKLINE-B0795355A

PATIENT
  Sex: Female

DRUGS (10)
  1. LAMICTAL [Suspect]
     Dosage: 50MG PER DAY
     Route: 048
     Dates: start: 20120325, end: 20120401
  2. LAMICTAL [Suspect]
     Indication: BIPOLAR DISORDER
     Dosage: 12.5MG PER DAY
     Route: 048
     Dates: start: 20120303, end: 20120309
  3. DEPAKENE [Concomitant]
     Indication: ANTIDEPRESSANT THERAPY
     Dosage: 600MG PER DAY
     Route: 048
  4. NITRAZEPAM [Concomitant]
     Indication: SLEEP DISORDER THERAPY
     Dosage: 10MG PER DAY
     Route: 048
  5. LAMICTAL [Suspect]
     Route: 048
     Dates: start: 20120317, end: 20120324
  6. ROHYPNOL [Concomitant]
     Indication: SLEEP DISORDER THERAPY
     Dosage: 1MG PER DAY
     Route: 048
  7. BASEN [Concomitant]
     Indication: DIABETES MELLITUS
     Dosage: .9MG PER DAY
     Route: 048
  8. LAMICTAL [Suspect]
     Dosage: 25MG PER DAY
     Route: 048
     Dates: start: 20120310, end: 20120316
  9. LAMICTAL [Suspect]
     Route: 048
     Dates: start: 20120402, end: 20120406
  10. CLONAZEPAM [Concomitant]
     Indication: SLEEP DISORDER THERAPY
     Dosage: 1MG PER DAY
     Route: 048

REACTIONS (8)
  - LYMPHOCYTE PERCENTAGE DECREASED [None]
  - DRUG ERUPTION [None]
  - NEUTROPHIL PERCENTAGE INCREASED [None]
  - ASPARTATE AMINOTRANSFERASE INCREASED [None]
  - ALANINE AMINOTRANSFERASE INCREASED [None]
  - RASH [None]
  - BLOOD LACTATE DEHYDROGENASE INCREASED [None]
  - C-REACTIVE PROTEIN INCREASED [None]
